FAERS Safety Report 4736987-7 (Version None)
Quarter: 2005Q3

REPORT INFORMATION
  Report Type: 
  Country: None (occurrence: None)
  Receive Date: 20050803
  Receipt Date: 20050721
  Transmission Date: 20060218
  Serious: Yes (Other)
  Sender: FDA-Public Use
  Company Number: 2005104598

PATIENT
  Age: 38 Year
  Sex: Female

DRUGS (2)
  1. SUDAFED SEVERE COLD CAPLETS (PARACETAMOL, PSEUDOEPHEDRINE, DEXTROAMETH [Suspect]
     Indication: SINUS DISORDER
     Dosage: 2 TABS/3 DOSES TOTAL, ORAL
     Route: 048
     Dates: start: 20050720, end: 20050720
  2. LEVOTHYROXINE SODIUM [Concomitant]

REACTIONS (10)
  - BLOOD PRESSURE INCREASED [None]
  - COLD SWEAT [None]
  - CONTUSION [None]
  - ERYTHEMA [None]
  - EXCORIATION [None]
  - FALL [None]
  - FEELING HOT [None]
  - LOSS OF CONSCIOUSNESS [None]
  - SKIN LACERATION [None]
  - TREMOR [None]
